FAERS Safety Report 15442990 (Version 3)
Quarter: 2018Q4

REPORT INFORMATION
  Report Type: Report from Study
  Country: CL (occurrence: CL)
  Receive Date: 20180928
  Receipt Date: 20181022
  Transmission Date: 20190204
  Serious: Yes (Hospitalization, Other)
  Sender: FDA-Public Use
  Company Number: CL-JNJFOC-20180933747

PATIENT
  Sex: Female

DRUGS (3)
  1. REMICADE [Suspect]
     Active Substance: INFLIXIMAB
     Indication: CROHN^S DISEASE
     Route: 042
     Dates: start: 201609, end: 201808
  2. REMICADE [Suspect]
     Active Substance: INFLIXIMAB
     Indication: CROHN^S DISEASE
     Route: 042
  3. REMICADE [Suspect]
     Active Substance: INFLIXIMAB
     Indication: CROHN^S DISEASE
     Route: 042
     Dates: start: 2013

REACTIONS (11)
  - Infusion related reaction [Unknown]
  - Off label use [Unknown]
  - Tachycardia [Unknown]
  - Meningitis aseptic [Unknown]
  - Arrhythmia [Unknown]
  - Psoriasis [Unknown]
  - Blood pressure increased [Unknown]
  - Laryngitis [Recovering/Resolving]
  - Product use issue [Unknown]
  - Surgery [Unknown]
  - Adverse drug reaction [Unknown]

NARRATIVE: CASE EVENT DATE: 2018
